FAERS Safety Report 9721809 (Version 1)
Quarter: 2013Q4

REPORT INFORMATION
  Report Type: Spontaneous
  Country: US (occurrence: US)
  Receive Date: 20131201
  Receipt Date: 20131201
  Transmission Date: 20140711
  Serious: No
  Sender: FDA-Public Use
  Company Number: US-ABBVIE-13P-163-1156727-00

PATIENT
  Age: 66 Year
  Sex: Male
  Weight: 127.12 kg

DRUGS (8)
  1. ANDROGEL [Suspect]
     Indication: BLOOD TESTOSTERONE DECREASED
     Dosage: 3 PUMPS
     Route: 061
     Dates: start: 2012, end: 201212
  2. ANDROGEL [Suspect]
     Dosage: 5 PUMPS
     Route: 061
     Dates: start: 201212, end: 201308
  3. PROVENTIL [Concomitant]
     Indication: ASTHMA
  4. UNKNOWN BLOOD PRESSURE MEDICATION [Concomitant]
     Indication: HYPERTENSION
  5. UNNAMED DIURETIC [Concomitant]
     Indication: HYPERTENSION
  6. CETIRIZINE [Concomitant]
     Indication: HYPERSENSITIVITY
  7. UNNAMED ALLERGY MEDICATION [Concomitant]
     Indication: HYPERSENSITIVITY
     Route: 050
  8. ADVAIR [Concomitant]
     Indication: ASTHMA

REACTIONS (3)
  - Blood testosterone decreased [Unknown]
  - Weight increased [Not Recovered/Not Resolved]
  - Arthralgia [Not Recovered/Not Resolved]
